FAERS Safety Report 16414790 (Version 4)
Quarter: 2019Q4

REPORT INFORMATION
  Report Type: Spontaneous
  Country: US (occurrence: US)
  Receive Date: 20190611
  Receipt Date: 20191028
  Transmission Date: 20200122
  Serious: Yes (Other)
  Sender: FDA-Public Use
  Company Number: US-PFIZER INC-2019116741

PATIENT
  Age: 66 Year
  Sex: Male
  Weight: 80.29 kg

DRUGS (3)
  1. VIAGRA [Suspect]
     Active Substance: SILDENAFIL CITRATE
     Indication: LUNG TRANSPLANT
     Dosage: 100 MG, AS NEEDED (MAYBE ANOTHER ONE 2 OR 3 DAYS LATER)
     Route: 048
     Dates: start: 2010
  2. VIAGRA [Suspect]
     Active Substance: SILDENAFIL CITRATE
     Indication: ERECTILE DYSFUNCTION
  3. VIAGRA [Suspect]
     Active Substance: SILDENAFIL CITRATE
     Indication: PROSTATIC DISORDER
     Dosage: 50 MG, UNK

REACTIONS (4)
  - Dyspnoea [Unknown]
  - Product prescribing error [Unknown]
  - Peripheral swelling [Unknown]
  - Malaise [Unknown]
